FAERS Safety Report 10985821 (Version 1)
Quarter: 2015Q2

REPORT INFORMATION
  Report Type: Spontaneous
  Country: US (occurrence: None)
  Receive Date: 20150403
  Receipt Date: 20150403
  Transmission Date: 20150821
  Serious: Yes (Hospitalization)
  Sender: FDA-Public Use
  Company Number: None

PATIENT
  Age: 70 Year
  Sex: Male
  Weight: 96.4 kg

DRUGS (1)
  1. CLOPIDOGREL [Suspect]
     Active Substance: CLOPIDOGREL BISULFATE
     Indication: TRANSIENT ISCHAEMIC ATTACK
     Route: 048
     Dates: start: 20101214, end: 20110127

REACTIONS (4)
  - VIIth nerve paralysis [None]
  - Transient ischaemic attack [None]
  - Dysarthria [None]
  - Cerebrovascular accident [None]

NARRATIVE: CASE EVENT DATE: 20110127
